FAERS Safety Report 11610728 (Version 2)
Quarter: 2015Q4

REPORT INFORMATION
  Report Type: Report from Study
  Country: US (occurrence: US)
  Receive Date: 20151008
  Receipt Date: 20151013
  Transmission Date: 20160304
  Serious: Yes (Death, Hospitalization, Other)
  Sender: FDA-Public Use
  Company Number: US-ALEXION PHARMACEUTICALS INC-A201503874

PATIENT
  Age: 50 Year

DRUGS (1)
  1. SOLIRIS [Suspect]
     Active Substance: ECULIZUMAB
     Indication: HAEMOLYTIC URAEMIC SYNDROME
     Dosage: UNK
     Route: 042
     Dates: start: 20150925, end: 201509

REACTIONS (5)
  - Death [Fatal]
  - Enterococcal sepsis [Recovering/Resolving]
  - Reticulocyte count abnormal [Not Recovered/Not Resolved]
  - Staphylococcal sepsis [Recovering/Resolving]
  - Platelet disorder [Not Recovered/Not Resolved]

NARRATIVE: CASE EVENT DATE: 20150927
